FAERS Safety Report 11498360 (Version 1)
Quarter: 2015Q3

REPORT INFORMATION
  Report Type: Spontaneous
  Country: CH (occurrence: CH)
  Receive Date: 20150911
  Receipt Date: 20150911
  Transmission Date: 20151125
  Serious: Yes (Other)
  Sender: FDA-Public Use
  Company Number: CH-BAXTER-2015BAX048805

PATIENT
  Age: 27 Year
  Sex: Male

DRUGS (9)
  1. HOLOXAN 1 G [Suspect]
     Active Substance: IFOSFAMIDE
     Route: 042
     Dates: start: 199709, end: 199806
  2. HOLOXAN 1 G [Suspect]
     Active Substance: IFOSFAMIDE
     Route: 042
     Dates: start: 201401, end: 201403
  3. CARBOPLATIN. [Suspect]
     Active Substance: CARBOPLATIN
     Indication: EWING^S SARCOMA METASTATIC
     Route: 042
     Dates: start: 199707, end: 199808
  4. DAFALGAN [Suspect]
     Active Substance: ACETAMINOPHEN
     Indication: INFLUENZA
     Route: 048
     Dates: start: 201503, end: 201503
  5. MELPHALAN [Suspect]
     Active Substance: MELPHALAN
     Indication: PRODUCT USED FOR UNKNOWN INDICATION
     Route: 065
     Dates: start: 20140412
  6. TREOSULFAN [Suspect]
     Active Substance: TREOSULFAN
     Indication: PRODUCT USED FOR UNKNOWN INDICATION
     Route: 065
     Dates: start: 20140412
  7. HOLOXAN 1 G [Suspect]
     Active Substance: IFOSFAMIDE
     Indication: EWING^S SARCOMA METASTATIC
     Route: 042
     Dates: start: 199707, end: 199808
  8. CARBOPLATIN. [Suspect]
     Active Substance: CARBOPLATIN
     Route: 042
     Dates: start: 201401, end: 201403
  9. INFLAMAC [Suspect]
     Active Substance: DICLOFENAC SODIUM
     Indication: INFLUENZA
     Dosage: 2-3 TIMES PER DAY
     Route: 048
     Dates: start: 201503, end: 201503

REACTIONS (5)
  - Chronic kidney disease [Not Recovered/Not Resolved]
  - Influenza [Unknown]
  - Fanconi syndrome [Not Recovered/Not Resolved]
  - Metastases to lung [Unknown]
  - Acute kidney injury [Not Recovered/Not Resolved]

NARRATIVE: CASE EVENT DATE: 20131122
